FAERS Safety Report 16693010 (Version 1)
Quarter: 2019Q3

REPORT INFORMATION
  Report Type: Report from Study
  Country: ES (occurrence: ES)
  Receive Date: 20190812
  Receipt Date: 20190812
  Transmission Date: 20191004
  Serious: Yes (Life-Threatening, Hospitalization)
  Sender: FDA-Public Use
  Company Number: ES-PFIZER INC-2019342709

PATIENT
  Age: 60 Year
  Sex: Female

DRUGS (3)
  1. VENLAFAXINE HCL [Suspect]
     Active Substance: VENLAFAXINE HYDROCHLORIDE
     Dosage: 5.25 G, EVERY 3 MONTHS
     Route: 048
     Dates: start: 20190407, end: 20190407
  2. MIRTAZAPINE. [Suspect]
     Active Substance: MIRTAZAPINE
     Dosage: 240 MG, EVERY 3 MONTHS
     Route: 048
     Dates: start: 20190407, end: 20190407
  3. RIVOTRIL [Suspect]
     Active Substance: CLONAZEPAM
     Dosage: 22.5 G, EVERY 3 MONTHS
     Route: 048
     Dates: start: 20190407, end: 20190407

REACTIONS (2)
  - Intentional overdose [Recovered/Resolved]
  - Depressed level of consciousness [Recovered/Resolved]

NARRATIVE: CASE EVENT DATE: 20190407
